FAERS Safety Report 13031972 (Version 1)
Quarter: 2016Q4

REPORT INFORMATION
  Report Type: Spontaneous
  Country: CH (occurrence: CH)
  Receive Date: 20161215
  Receipt Date: 20161215
  Transmission Date: 20170207
  Serious: Yes (Life-Threatening, Other)
  Sender: FDA-Public Use
  Company Number: PHHY2016CH172279

PATIENT
  Age: 68 Year
  Sex: Male

DRUGS (6)
  1. MADOPAR [Concomitant]
     Active Substance: BENSERAZIDE HYDROCHLORIDE\LEVODOPA
     Indication: PARKINSON^S DISEASE
     Dosage: 1 DF, UNK (ADMINISTERED FOR SEVERAL MONTHS/YEARS)
     Route: 048
  2. AZILECT [Suspect]
     Active Substance: RASAGILINE MESYLATE
     Indication: PARKINSON^S DISEASE
     Dosage: 1 DF, QD
     Route: 048
  3. SIFROL [Concomitant]
     Active Substance: PRAMIPEXOLE
     Indication: PARKINSON^S DISEASE
     Dosage: 1 DF, UNK (DAILY DOSE 2.25 MG ADMINISTERED FOR SEVERAL MONTHS/YEARS)
     Route: 048
  4. APYDAN [Concomitant]
     Active Substance: OXCARBAZEPINE
     Indication: EPILEPSY
     Dosage: 1 DF, UNK (DAILY DOSE = 600 MG)
     Route: 048
     Dates: start: 20161031
  5. PANTOPRAZOL [Concomitant]
     Active Substance: PANTOPRAZOLE SODIUM
     Indication: GASTROOESOPHAGEAL REFLUX DISEASE
     Dosage: 20 MG, QD
     Route: 048
     Dates: start: 20161007
  6. STALEVO [Suspect]
     Active Substance: CARBIDOPA\ENTACAPONE\LEVODOPA
     Indication: PARKINSON^S DISEASE
     Dosage: 1 DF, BID (FORM STRENGTH: 200/150/37.5 MG)
     Route: 048
     Dates: start: 20161108

REACTIONS (2)
  - Acute myocardial infarction [Unknown]
  - Troponin T increased [Unknown]

NARRATIVE: CASE EVENT DATE: 20161109
